FAERS Safety Report 4428286-8 (Version None)
Quarter: 2004Q3

REPORT INFORMATION
  Report Type: 
  Country: None (occurrence: None)
  Receive Date: 20040813
  Receipt Date: 20040802
  Transmission Date: 20050211
  Serious: Yes (Life-Threatening, Hospitalization)
  Sender: FDA-Public Use
  Company Number: 2004225048JP

PATIENT
  Age: 36 Year
  Sex: Female
  Weight: 48 kg

DRUGS (4)
  1. HALCION [Suspect]
     Indication: DEPRESSION
     Dosage: 0.25 MG, QD,
     Dates: start: 20030218, end: 20030623
  2. LUDIOMIL [Suspect]
     Indication: DEPRESSION
     Dosage: 25 MG, BID
     Dates: start: 20030218, end: 20030623
  3. RESLIN [Concomitant]
  4. DEPAS (ETIZOLAM) [Concomitant]

REACTIONS (9)
  - DEPRESSED LEVEL OF CONSCIOUSNESS [None]
  - GASTRIC ULCER [None]
  - GASTRITIS ATROPHIC [None]
  - HEART RATE INCREASED [None]
  - OVERDOSE [None]
  - SCAR [None]
  - SUICIDE ATTEMPT [None]
  - THERAPY NON-RESPONDER [None]
  - TORSADE DE POINTES [None]
